FAERS Safety Report 23722442 (Version 1)
Quarter: 2024Q2

REPORT INFORMATION
  Report Type: Spontaneous
  Country: US (occurrence: US)
  Receive Date: 20240409
  Receipt Date: 20240409
  Transmission Date: 20240716
  Serious: No
  Sender: FDA-Public Use
  Company Number: US-BAYER-2024A047571

PATIENT
  Age: 61 Year
  Sex: Female

DRUGS (1)
  1. CIPRO [Suspect]
     Active Substance: CIPROFLOXACIN HYDROCHLORIDE
     Indication: Animal bite
     Dosage: 250 MG, BID
     Dates: start: 20130209, end: 20130215

REACTIONS (3)
  - Heart rate increased [Recovered/Resolved with Sequelae]
  - Tendon pain [Not Recovered/Not Resolved]
  - Off label use [None]

NARRATIVE: CASE EVENT DATE: 20130215
